FAERS Safety Report 4867835-2 (Version None)
Quarter: 2005Q4

REPORT INFORMATION
  Report Type: 
  Country: None (occurrence: None)
  Receive Date: 20051228
  Receipt Date: 20051216
  Transmission Date: 20060501
  Serious: Yes (Life-Threatening, Disabling)
  Sender: FDA-Public Use
  Company Number: US-MERCK-0512USA03176

PATIENT
  Sex: Male

DRUGS (6)
  1. MONOPRIL [Concomitant]
     Route: 048
     Dates: end: 20040101
  2. ZOCOR [Suspect]
     Route: 048
     Dates: start: 20030101, end: 20030901
  3. ZOCOR [Suspect]
     Route: 048
     Dates: start: 20030912, end: 20040102
  4. FOLIC ACID [Concomitant]
     Route: 048
  5. ALLEGRA [Concomitant]
     Route: 048
  6. INSULIN [Concomitant]
     Route: 058

REACTIONS (17)
  - ALANINE AMINOTRANSFERASE INCREASED [None]
  - ALDOLASE INCREASED [None]
  - ASPARTATE AMINOTRANSFERASE INCREASED [None]
  - BLOOD BILIRUBIN INCREASED [None]
  - CANDIDIASIS [None]
  - DIABETIC NEUROPATHY [None]
  - DIARRHOEA [None]
  - DYSPNOEA [None]
  - GASTRITIS [None]
  - GYNAECOMASTIA [None]
  - INSOMNIA [None]
  - MYOGLOBIN URINE PRESENT [None]
  - MYOPATHY [None]
  - POLYMYOSITIS [None]
  - PROSTATE EXAMINATION ABNORMAL [None]
  - SINUS TACHYCARDIA [None]
  - SKIN DISORDER [None]
